FAERS Safety Report 7610215-7 (Version None)
Quarter: 2011Q3

REPORT INFORMATION
  Report Type: 
  Country: None (occurrence: None)
  Receive Date: 20110715
  Receipt Date: 20110704
  Transmission Date: 20111222
  Serious: Yes (Death, Hospitalization, Other)
  Sender: FDA-Public Use
  Company Number: JP-AMGEN-JPNSP2011008405

PATIENT
  Age: 73 Year
  Sex: Female
  Weight: 50 kg

DRUGS (12)
  1. METHOTREXATE [Concomitant]
     Indication: RHEUMATOID ARTHRITIS
     Dosage: 8 MG, WEEKLY
     Route: 048
     Dates: start: 20070904, end: 20080801
  2. ZOLPIDEM [Concomitant]
     Indication: INSOMNIA
     Dosage: 10 MG, 1X/DAY
     Route: 048
     Dates: start: 20070904, end: 20080916
  3. METHOTREXATE [Concomitant]
     Dosage: 8 MG, WEEKLY
     Dates: start: 20080901, end: 20081014
  4. ENBREL [Suspect]
     Dosage: 25 MG, 2X/WEEK
     Dates: start: 20080909, end: 20081014
  5. ENBREL [Suspect]
     Indication: RHEUMATOID ARTHRITIS
     Dosage: 25 MG, 2X/WEEK
     Route: 058
     Dates: start: 20060501, end: 20070501
  6. ENBREL [Suspect]
     Dosage: 25 MG, WEEKLY
     Dates: start: 20070904, end: 20080718
  7. ENBREL [Suspect]
     Dosage: 25 MG, 2X/WEEK
     Dates: start: 20080718, end: 20080801
  8. GRANDAXIN [Concomitant]
     Indication: AUTONOMIC NERVOUS SYSTEM IMBALANCE
     Dosage: 50 MG, 1X/DAY
     Route: 048
     Dates: start: 20080617, end: 20080715
  9. ELCITONIN [Concomitant]
     Indication: OSTEOPOROSIS
     Dosage: 20 IU, WEEKLY
     Route: 030
     Dates: start: 20080205, end: 20080318
  10. DEPAS [Concomitant]
     Indication: INSOMNIA
     Dosage: 0.5 MG, WEEKLY
     Route: 048
     Dates: start: 20070904, end: 20080812
  11. VOLTAREN [Concomitant]
     Indication: ANALGESIC THERAPY
     Dosage: 50 MG, 1X/DAY
     Route: 054
     Dates: start: 20070904, end: 20071002
  12. MAGNESIUM OXIDE [Concomitant]
     Indication: CONSTIPATION
     Dosage: 1 G, 2X/DAY
     Route: 048
     Dates: start: 20080617, end: 20080916

REACTIONS (4)
  - LOSS OF CONSCIOUSNESS [None]
  - CIRCULATORY COLLAPSE [None]
  - AORTIC ANEURYSM RUPTURE [None]
  - AORTIC DISSECTION [None]
